FAERS Safety Report 18255141 (Version 1)
Quarter: 2020Q3

REPORT INFORMATION
  Report Type: Report from Study
  Country: US (occurrence: US)
  Receive Date: 20200910
  Receipt Date: 20200910
  Transmission Date: 20201103
  Serious: Yes (Hospitalization)
  Sender: FDA-Public Use
  Company Number: US-JNJFOC-A-NJ2018-177118

PATIENT
  Age: 68 Year
  Sex: Female
  Weight: 106.58 kg

DRUGS (3)
  1. TYVASO [Concomitant]
     Active Substance: TREPROSTINIL
     Dosage: 10 BREATHS/MIN, QID
     Route: 055
  2. OPSUMIT [Suspect]
     Active Substance: MACITENTAN
     Dosage: 10 MG, QD
     Route: 048
  3. OPSUMIT [Suspect]
     Active Substance: MACITENTAN
     Indication: PULMONARY ARTERIAL HYPERTENSION
     Dosage: 10 MG, QD
     Route: 048

REACTIONS (13)
  - Hospitalisation [Unknown]
  - Nasal congestion [Unknown]
  - Cyst removal [Unknown]
  - Dyspnoea [Recovering/Resolving]
  - Cellulitis [Unknown]
  - Headache [Recovering/Resolving]
  - Tooth abscess [Unknown]
  - Nasopharyngitis [Unknown]
  - Back pain [Unknown]
  - Spinal stenosis [Unknown]
  - Gastrointestinal haemorrhage [Unknown]
  - Fungal infection [Unknown]
  - Cough [Unknown]
